FAERS Safety Report 5739787-4 (Version None)
Quarter: 2008Q2

REPORT INFORMATION
  Report Type: 
  Country: None (occurrence: None)
  Receive Date: 20080516
  Receipt Date: 20080507
  Transmission Date: 20081010
  Serious: Yes (Other)
  Sender: FDA-Public Use
  Company Number: GB-RANBAXY-2006RR-03050

PATIENT

DRUGS (4)
  1. METFORMIN HCL [Suspect]
     Indication: DIABETES MELLITUS
     Dosage: 1 G, BID
     Route: 048
  2. PREDNISOLONE RPG 20MG COMPRIME EFFERVESCENT SECABLE [Suspect]
     Indication: UVEITIS
     Dosage: 45 MG, QD
  3. ACTOS [Suspect]
     Dosage: 45 MG, QD
  4. INSULIN [Concomitant]
     Indication: DIABETES MELLITUS

REACTIONS (2)
  - DIABETES MELLITUS INADEQUATE CONTROL [None]
  - MACULAR OEDEMA [None]
